FAERS Safety Report 5904427-8 (Version None)
Quarter: 2008Q4

REPORT INFORMATION
  Report Type: 
  Country: None (occurrence: None)
  Receive Date: 20081001
  Receipt Date: 20080923
  Transmission Date: 20090506
  Serious: Yes (Hospitalization, Other)
  Sender: FDA-Public Use
  Company Number: RU-BAYER-200826946GPV

PATIENT
  Age: 43 Year
  Sex: Female

DRUGS (1)
  1. MIRENA [Suspect]
     Indication: CONTRACEPTION
     Route: 015
     Dates: start: 20070608, end: 20080923

REACTIONS (4)
  - ATAXIA [None]
  - DIZZINESS [None]
  - HEADACHE [None]
  - ISCHAEMIC STROKE [None]
